FAERS Safety Report 4544477-X (Version None)
Quarter: 2004Q4

REPORT INFORMATION
  Report Type: 
  Country: None (occurrence: None)
  Receive Date: 20041228
  Receipt Date: 20041222
  Transmission Date: 20050328
  Serious: Yes (Other)
  Sender: FDA-Public Use
  Company Number: HQWYE160922DEC04

PATIENT
  Age: 77 Year
  Sex: Male

DRUGS (1)
  1. RECOMBINANT HUMAN INTERLEUKIN-11 (RHIL-11) (OPRELVEKIN, INJECTION) [Suspect]
     Indication: REFRACTORY ANAEMIA WITH AN EXCESS OF BLASTS
     Dosage: 10 UG /KG 1X PER 1 DAY, SUBCUTANEOUS; FOR 2 WEEKS X TWO COURSES
     Route: 058

REACTIONS (1)
  - TRANSIENT ISCHAEMIC ATTACK [None]
